FAERS Safety Report 24683452 (Version 1)
Quarter: 2024Q4

REPORT INFORMATION
  Report Type: Spontaneous
  Country: MA (occurrence: MA)
  Receive Date: 20241201
  Receipt Date: 20241201
  Transmission Date: 20250115
  Serious: Yes (Other)
  Sender: AMGEN
  Company Number: MA-PFIZER INC-PV202400153139

PATIENT
  Age: 35 Year
  Sex: Female

DRUGS (1)
  1. ENBREL [Suspect]
     Active Substance: ETANERCEPT
     Indication: Product used for unknown indication
     Dosage: 25 MG, 2X/WEEK
     Route: 058
     Dates: start: 20240926

REACTIONS (1)
  - Hyperleukocytosis [Recovering/Resolving]

NARRATIVE: CASE EVENT DATE: 20241113
